FAERS Safety Report 6234798-7 (Version None)
Quarter: 2009Q2

REPORT INFORMATION
  Report Type: 
  Country: None (occurrence: None)
  Receive Date: 20090615
  Receipt Date: 20090529
  Transmission Date: 20091009
  Serious: Yes (Hospitalization)
  Sender: FDA-Public Use
  Company Number: F03200900055

PATIENT
  Age: 63 Year

DRUGS (3)
  1. FLUDARABINE PHOSPHATE [Suspect]
     Indication: CHRONIC LYMPHOCYTIC LEUKAEMIA
     Dosage: ORAL - 3 DAYS - TIME TO ONSET:
     Route: 048
     Dates: start: 20080703, end: 20080705
  2. (CYCLOPHOSPHAMIDE) - UNKNOWN - UNIT DOSE; UNKNOWN [Suspect]
     Indication: CHRONIC LYMPHOCYTIC LEUKAEMIA
     Dosage: ORAL; 3 DAYS - TIME TO ONSET
     Route: 048
     Dates: start: 20080703, end: 20080705
  3. COTRIMOXAZOL ^ALIUD^ - (COTRIMOXAZOL) - UNKNOWN - UNIT DOSE: UNKNOWN [Suspect]

REACTIONS (2)
  - ERYTHEMA MULTIFORME [None]
  - NO THERAPEUTIC RESPONSE [None]
